FAERS Safety Report 9783418 (Version 3)
Quarter: 2014Q1

REPORT INFORMATION
  Report Type: Report from Study
  Country: AU (occurrence: AU)
  Receive Date: 20131226
  Receipt Date: 20140203
  Transmission Date: 20141002
  Serious: Yes (Hospitalization, Disabling, Other)
  Sender: FDA-Public Use
  Company Number: PHHY2013AU070398

PATIENT
  Age: 26 Year
  Sex: Male

DRUGS (10)
  1. CLOZARIL [Suspect]
     Dosage: 250 MG, DAILY
     Dates: start: 20090621
  2. CLOZARIL [Suspect]
     Dosage: 200 MG, UNK
     Dates: start: 20120924
  3. CLOZARIL [Suspect]
     Dosage: 250 MG, DAILY
     Dates: end: 20131127
  4. PALIPERIDONE [Concomitant]
     Indication: SCHIZOPHRENIA
     Dosage: 150 MG, 4/WEEKLY
     Route: 030
     Dates: start: 20130520
  5. OLANZAPINE [Concomitant]
     Dosage: 10 MG, MANE
     Route: 048
     Dates: start: 20130509
  6. RISPERIDONE [Concomitant]
     Dosage: 2 MG, BID
     Route: 048
     Dates: start: 20130514, end: 20130517
  7. SODIUM VALPROATE [Concomitant]
     Dosage: 500 MG MANE/ 1000 MG NOCTE
  8. FISH OIL [Concomitant]
     Dosage: 1 DF, MANE
  9. TESTOSTERONE [Concomitant]
     Dosage: 2 PUMPS DAILY (SELF APPLIED)
  10. TESTOSTERONE UNDECANOATE [Concomitant]
     Dosage: 1000MG/4ML, 3 MONTHLY

REACTIONS (12)
  - Toxicity to various agents [Recovering/Resolving]
  - Poor quality sleep [Recovering/Resolving]
  - Hallucination [Recovering/Resolving]
  - Confusional state [Recovering/Resolving]
  - Substance abuse [Recovered/Resolved with Sequelae]
  - Drug screen positive [Unknown]
  - Hepatitis C virus test positive [Not Recovered/Not Resolved]
  - Blood creatine decreased [Unknown]
  - Haemoglobin increased [Unknown]
  - Haematocrit increased [Unknown]
  - Platelet count decreased [Unknown]
  - Antipsychotic drug level decreased [Unknown]
